FAERS Safety Report 21466805 (Version 2)
Quarter: 2022Q4

REPORT INFORMATION
  Report Type: Spontaneous
  Country: JP (occurrence: JP)
  Receive Date: 20221017
  Receipt Date: 20221019
  Transmission Date: 20230113
  Serious: Yes (Death, Other)
  Sender: FDA-Public Use
  Company Number: JP-OTSUKA-2022_048064

PATIENT
  Sex: Female

DRUGS (1)
  1. TOLVAPTAN [Suspect]
     Active Substance: TOLVAPTAN
     Indication: Cardiac failure
     Dosage: 8 MG/DAY
     Route: 065
     Dates: end: 20221007

REACTIONS (3)
  - Hypernatraemia [Fatal]
  - Renal impairment [Unknown]
  - Pyrexia [Fatal]

NARRATIVE: CASE EVENT DATE: 20221011
